FAERS Safety Report 20822045 (Version 1)
Quarter: 2022Q2

REPORT INFORMATION
  Report Type: Spontaneous
  Country: US (occurrence: None)
  Receive Date: 20220512
  Receipt Date: 20220512
  Transmission Date: 20220721
  Serious: Yes (Life-Threatening)
  Sender: FDA-Public Use
  Company Number: None

PATIENT
  Age: 56 Year
  Sex: Female
  Weight: 85.5 kg

DRUGS (3)
  1. TRAZODONE [Suspect]
     Active Substance: TRAZODONE HYDROCHLORIDE
     Indication: Sleep disorder
  2. ZOLOFT [Concomitant]
     Active Substance: SERTRALINE HYDROCHLORIDE
  3. VITAMINS [Concomitant]
     Active Substance: VITAMINS

REACTIONS (5)
  - Manufacturing issue [None]
  - Suicidal ideation [None]
  - Drug ineffective [None]
  - Asthenia [None]
  - Feelings of worthlessness [None]

NARRATIVE: CASE EVENT DATE: 20220311
